FAERS Safety Report 13177932 (Version 1)
Quarter: 2017Q1

REPORT INFORMATION
  Report Type: Report from Study
  Country: US (occurrence: US)
  Receive Date: 20170202
  Receipt Date: 20170202
  Transmission Date: 20170428
  Serious: No
  Sender: FDA-Public Use
  Company Number: US-JNJFOC-20170122980

PATIENT
  Age: 69 Year
  Sex: Male

DRUGS (11)
  1. FAMOTIDINE. [Concomitant]
     Active Substance: FAMOTIDINE
  2. SENNA LAXATIVE [Concomitant]
     Active Substance: SENNOSIDES
  3. VALACYCLOVIR [Concomitant]
     Active Substance: VALACYCLOVIR HYDROCHLORIDE
  4. BACTRIM DS [Concomitant]
     Active Substance: SULFAMETHOXAZOLE\TRIMETHOPRIM
  5. ALLOPURINOL. [Concomitant]
     Active Substance: ALLOPURINOL
  6. ATORVASTATIN [Concomitant]
     Active Substance: ATORVASTATIN
  7. FINASTERIDE. [Concomitant]
     Active Substance: FINASTERIDE
  8. IMBRUVICA [Suspect]
     Active Substance: IBRUTINIB
     Indication: CHRONIC LYMPHOCYTIC LEUKAEMIA
     Route: 048
  9. LEVAQUIN [Suspect]
     Active Substance: LEVOFLOXACIN
     Indication: URINARY TRACT INFECTION
     Route: 048
     Dates: start: 20170117, end: 201701
  10. CARVEDILOL. [Concomitant]
     Active Substance: CARVEDILOL
  11. IMBRUVICA [Suspect]
     Active Substance: IBRUTINIB
     Indication: CHRONIC LYMPHOCYTIC LEUKAEMIA
     Route: 048
     Dates: start: 20161214

REACTIONS (5)
  - Myalgia [Recovered/Resolved]
  - Incorrect dose administered [Unknown]
  - Urinary tract infection [Unknown]
  - Off label use [Unknown]
  - Fatigue [Not Recovered/Not Resolved]

NARRATIVE: CASE EVENT DATE: 20170116
